FAERS Safety Report 4705977-2 (Version None)
Quarter: 2005Q2

REPORT INFORMATION
  Report Type: 
  Country: None (occurrence: None)
  Receive Date: 20050629
  Receipt Date: 20050622
  Transmission Date: 20051028
  Serious: Yes (Other)
  Sender: FDA-Public Use
  Company Number: 2005092351

PATIENT
  Age: 66 Year
  Sex: Male
  Weight: 90.7194 kg

DRUGS (5)
  1. BEXTRA [Suspect]
     Indication: ARTHRITIS
     Dosage: 20 MG (20 MG, 1 IN 1 D), ORAL
     Route: 048
     Dates: start: 20030731
  2. ALLEGRA [Concomitant]
  3. NORVASC [Concomitant]
  4. HYDROCHLOROTHIAZIDE [Concomitant]
  5. NASACORT AQ (TRIAMCINOLONE ACETONIDE) [Concomitant]

REACTIONS (12)
  - CHOLELITHIASIS [None]
  - DYSPHAGIA [None]
  - DYSPNOEA [None]
  - FATIGUE [None]
  - FEELING ABNORMAL [None]
  - HEART RATE DECREASED [None]
  - HEART RATE IRREGULAR [None]
  - HIATUS HERNIA [None]
  - MYOCARDIAL INFARCTION [None]
  - SOMNOLENCE [None]
  - TREMOR [None]
  - TRIGGER FINGER [None]
